FAERS Safety Report 8693916 (Version 4)
Quarter: 2013Q3

REPORT INFORMATION
  Report Type: Spontaneous
  Country: US (occurrence: US)
  Receive Date: 20120731
  Receipt Date: 20130927
  Transmission Date: 20140515
  Serious: Yes (Hospitalization, Other)
  Sender: FDA-Public Use
  Company Number: US-PFIZER INC-2012181515

PATIENT
  Age: 58 Year
  Sex: Male
  Weight: 82 kg

DRUGS (3)
  1. DILANTIN [Suspect]
     Indication: CONVULSION
     Dosage: 200 MG (100MG 2 CAPSULES), 2X/DAY
     Route: 048
     Dates: start: 20100810, end: 20100828
  2. NORVASC [Concomitant]
     Indication: HYPERTENSION
     Dosage: 10 MG (5MG 2 TABLETS), 2X/DAY
     Route: 048
     Dates: start: 20100810, end: 20100828
  3. GLUCOTROL [Concomitant]
     Indication: BLOOD GLUCOSE INCREASED
     Dosage: 2.5 MG (HALF A TABLET OF 5MG), BEFORE MEAL 1X/DAY
     Route: 048
     Dates: start: 20100810

REACTIONS (2)
  - Stevens-Johnson syndrome [Recovered/Resolved]
  - Toxic epidermal necrolysis [Recovered/Resolved]
